FAERS Safety Report 23525480 (Version 1)
Quarter: 2024Q1

REPORT INFORMATION
  Report Type: Spontaneous
  Country: PK (occurrence: PK)
  Receive Date: 20240215
  Receipt Date: 20240215
  Transmission Date: 20240409
  Serious: Yes (Other)
  Sender: FDA-Public Use
  Company Number: PK-PFIZER INC-PV202400018600

PATIENT
  Age: 76 Year
  Sex: Female

DRUGS (6)
  1. ENBREL [Suspect]
     Active Substance: ETANERCEPT
     Indication: Rheumatoid arthritis
     Dosage: 50 MILLIGRAM, QWK
     Route: 058
     Dates: start: 20230210
  2. METHOTREXATE [Concomitant]
     Active Substance: METHOTREXATE
     Indication: Product used for unknown indication
     Dosage: 8 TAB / WEEKLY
     Route: 065
  3. FOLIC ACID [Concomitant]
     Active Substance: FOLIC ACID
     Indication: Product used for unknown indication
     Dosage: 5 MILLIGRAM, QD
     Route: 065
  4. OLGON [Concomitant]
     Indication: Product used for unknown indication
     Dosage: 100 MG, 1+0+0 (1+0+1)
     Route: 065
  5. TRAMAPAR [Concomitant]
     Indication: Product used for unknown indication
     Dosage: 0+0+1
     Route: 065
  6. DELTACORTRIL [Concomitant]
     Active Substance: PREDNISOLONE
     Indication: Product used for unknown indication
     Dosage: 5 MG, 1/2 +0+0+0+0+0+0 X 1 MONTH
     Route: 065

REACTIONS (1)
  - Hip arthroplasty [Unknown]
